FAERS Safety Report 5811390-7 (Version None)
Quarter: 2008Q3

REPORT INFORMATION
  Report Type: 
  Country: None (occurrence: None)
  Receive Date: 20080716
  Receipt Date: 20080711
  Transmission Date: 20090109
  Serious: Yes (Death)
  Sender: FDA-Public Use
  Company Number: JP-AVENTIS-200713535JP

PATIENT
  Age: 68 Year
  Sex: Male
  Weight: 53 kg

DRUGS (2)
  1. TAXOTERE [Suspect]
     Indication: OESOPHAGEAL CARCINOMA
     Route: 041
     Dates: start: 20071022, end: 20071203
  2. RADIATION [Concomitant]
     Indication: OESOPHAGEAL CARCINOMA
     Dosage: DOSE: 60 GY/TOTAL
     Dates: start: 20071022, end: 20071203

REACTIONS (4)
  - CHOLECYSTITIS [None]
  - INTERSTITIAL LUNG DISEASE [None]
  - PULMONARY FIBROSIS [None]
  - RESPIRATORY FAILURE [None]
